FAERS Safety Report 4666840-9 (Version None)
Quarter: 2005Q2

REPORT INFORMATION
  Report Type: 
  Country: None (occurrence: None)
  Receive Date: 20050519
  Receipt Date: 20050511
  Transmission Date: 20051028
  Serious: Yes (Hospitalization)
  Sender: FDA-Public Use
  Company Number: DK-MERCK-0505DNK00008

PATIENT
  Age: 62 Year
  Sex: Female

DRUGS (6)
  1. VIOXX [Suspect]
     Indication: ARTHRITIS
     Route: 048
     Dates: start: 20000630, end: 20041011
  2. VIOXX [Suspect]
     Indication: PAIN
     Route: 048
     Dates: start: 20000630, end: 20041011
  3. AMLODIPINE BESYLATE [Concomitant]
     Route: 048
     Dates: start: 19921208
  4. FUROSEMIDE [Concomitant]
     Route: 048
     Dates: start: 19960507
  5. ESOMEPRAZOLE MAGNESIUM [Concomitant]
     Route: 048
     Dates: start: 20030717
  6. BROMAZEPAM [Concomitant]
     Route: 048
     Dates: start: 20000215

REACTIONS (1)
  - CEREBRAL THROMBOSIS [None]
